FAERS Safety Report 5627665-0 (Version None)
Quarter: 2008Q1

REPORT INFORMATION
  Report Type: 
  Country: None (occurrence: None)
  Receive Date: 20080214
  Receipt Date: 20080214
  Transmission Date: 20080703
  Serious: Yes (Other)
  Sender: FDA-Public Use
  Company Number: None

PATIENT
  Sex: Female
  Weight: 61.2356 kg

DRUGS (5)
  1. CIPRO [Suspect]
     Indication: URINARY TRACT INFECTION
     Dosage: 500 MG. TABS 2TIMES/DAY ORAL
     Route: 048
     Dates: start: 20071213, end: 20071220
  2. . [Concomitant]
  3. FELDENE [Concomitant]
  4. AMITRIPTYLINE HCL [Concomitant]
  5. WELLBUTRIN [Concomitant]

REACTIONS (1)
  - TENDON RUPTURE [None]
